FAERS Safety Report 13344539 (Version 10)
Quarter: 2017Q3

REPORT INFORMATION
  Report Type: Spontaneous
  Country: US (occurrence: US)
  Receive Date: 20170317
  Receipt Date: 20170816
  Transmission Date: 20171127
  Serious: Yes (Other)
  Sender: FDA-Public Use
  Company Number: PHEH2017US007967

PATIENT
  Sex: Female
  Weight: 56.69 kg

DRUGS (5)
  1. ZOFRAN [Suspect]
     Active Substance: ONDANSETRON HYDROCHLORIDE
     Indication: PRODUCT USED FOR UNKNOWN INDICATION
     Route: 048
  2. ONDANSETRON [Suspect]
     Active Substance: ONDANSETRON
     Indication: VOMITING IN PREGNANCY
     Dosage: 04 MG, Q6H
     Route: 065
     Dates: start: 20111130, end: 20111202
  3. ONDANSETRON [Suspect]
     Active Substance: ONDANSETRON
     Dosage: 04 MG, Q6H
     Route: 065
     Dates: start: 20120609, end: 20120609
  4. ONDANSETRON [Suspect]
     Active Substance: ONDANSETRON
     Dosage: 04 MG, Q8H
     Route: 065
     Dates: start: 20120106, end: 20120108
  5. ONDANSETRON [Suspect]
     Active Substance: ONDANSETRON
     Dosage: 08 MG, Q6H
     Route: 065
     Dates: start: 20120322, end: 20120324

REACTIONS (22)
  - Pneumonia [Unknown]
  - Wheezing [Unknown]
  - Vaginal haemorrhage [Unknown]
  - Emotional distress [Unknown]
  - Costochondritis [Unknown]
  - Tonsillitis [Unknown]
  - Ureterolithiasis [Unknown]
  - Maternal exposure during pregnancy [Unknown]
  - Nephrolithiasis [Unknown]
  - Malaise [Unknown]
  - Migraine [Unknown]
  - Conjunctivitis [Unknown]
  - Acute sinusitis [Unknown]
  - Product use issue [Unknown]
  - Asthenia [Unknown]
  - Back pain [Unknown]
  - Cough [Unknown]
  - Fatigue [Unknown]
  - Dyspnoea [Unknown]
  - Oropharyngeal pain [Unknown]
  - Cystitis [Unknown]
  - Headache [Unknown]
